FAERS Safety Report 17798862 (Version 1)
Quarter: 2020Q2

REPORT INFORMATION
  Report Type: Report from Study
  Country: US (occurrence: US)
  Receive Date: 20200518
  Receipt Date: 20200518
  Transmission Date: 20200714
  Serious: No
  Sender: FDA-Public Use
  Company Number: US-BIOVITRUM-BVT-000504

PATIENT
  Sex: Male
  Weight: 12 kg

DRUGS (2)
  1. NITROFURANTOIN. [Concomitant]
     Active Substance: NITROFURANTOIN
     Indication: PROPHYLAXIS
     Route: 048
  2. KINERET [Suspect]
     Active Substance: ANAKINRA
     Indication: DEFICIENCY OF THE INTERLEUKIN-1 RECEPTOR ANTAGONIST

REACTIONS (1)
  - Therapeutic product ineffective for unapproved indication [Unknown]
